FAERS Safety Report 15088353 (Version 1)
Quarter: 2018Q2

REPORT INFORMATION
  Report Type: Spontaneous
  Country: DE (occurrence: DE)
  Receive Date: 20180629
  Receipt Date: 20180629
  Transmission Date: 20180711
  Serious: Yes (Hospitalization)
  Sender: FDA-Public Use
  Company Number: DE-TEVA-2018-DE-911887

PATIENT
  Age: 57 Year
  Sex: Female

DRUGS (2)
  1. CANDESARTAN. [Suspect]
     Active Substance: CANDESARTAN
     Indication: HYPERTENSION
     Dosage: 4 MILLIGRAM DAILY;  QD
     Route: 065
  2. CONCOR COR [Interacting]
     Active Substance: BISOPROLOL FUMARATE
     Indication: TACHYCARDIA PAROXYSMAL
     Dosage: 5 MILLIGRAM DAILY;  QD
     Route: 065

REACTIONS (8)
  - Blood pressure abnormal [Recovering/Resolving]
  - Drug interaction [Unknown]
  - Fall [Unknown]
  - Dizziness [Unknown]
  - Fracture [Unknown]
  - Influenza [Unknown]
  - Off label use [Unknown]
  - Malaise [Unknown]
